FAERS Safety Report 4432111-9 (Version None)
Quarter: 2004Q3

REPORT INFORMATION
  Report Type: 
  Country: None (occurrence: None)
  Receive Date: 20040825
  Receipt Date: 20040818
  Transmission Date: 20050211
  Serious: Yes (Hospitalization)
  Sender: FDA-Public Use
  Company Number: PHEH2004US08986

PATIENT
  Age: 29 Year
  Sex: Female

DRUGS (2)
  1. ZELNORM [Suspect]
     Indication: CONSTIPATION
     Dates: start: 20021001
  2. ZELNORM [Suspect]
     Dosage: DOUBLED DOSE
     Dates: end: 20021101

REACTIONS (2)
  - ABDOMINAL PAIN [None]
  - COLECTOMY PARTIAL [None]
